FAERS Safety Report 21133826 (Version 1)
Quarter: 2022Q3

REPORT INFORMATION
  Report Type: Spontaneous
  Country: CA (occurrence: CA)
  Receive Date: 20220726
  Receipt Date: 20220726
  Transmission Date: 20221026
  Serious: Yes (Other)
  Sender: FDA-Public Use
  Company Number: CA-JAZZ-2022-CA-024187

PATIENT
  Age: 32 Year
  Sex: Female

DRUGS (11)
  1. ASPARAGINASE [Suspect]
     Active Substance: ASPARAGINASE
     Indication: Salvage therapy
     Route: 030
  2. DEXAMETHASONE [Suspect]
     Active Substance: DEXAMETHASONE
     Indication: Salvage therapy
     Dosage: 44 MILLIGRAM, 1 EVENRY 24 HOURS
     Route: 065
  3. ETOPOSIDE [Suspect]
     Active Substance: ETOPOSIDE
     Indication: Salvage therapy
     Dosage: 100 MICROGRAM/SQ. METER
     Route: 042
  4. IFOSFAMIDE [Suspect]
     Active Substance: IFOSFAMIDE
     Indication: Salvage therapy
     Dosage: 1200 MICROGRAM PER SQUARE METRE, 1 EVERY 24 HOURS
     Route: 042
  5. IFOSFAMIDE [Suspect]
     Active Substance: IFOSFAMIDE
     Dosage: 1500 MICROGRAM/SQ. METER
  6. METHOTREXATE [Suspect]
     Active Substance: METHOTREXATE
     Indication: Salvage therapy
     Route: 048
  7. CISPLATIN [Concomitant]
     Active Substance: CISPLATIN
     Indication: Salvage therapy
     Dosage: 33 MICROGRAM/SQ. METER, 1 EVERY 1 WEEKS
     Route: 042
  8. LEUCOVORIN [Concomitant]
     Active Substance: LEUCOVORIN
     Indication: Salvage therapy
     Dosage: 15 MILLIGRAM, 4 EVERY 1 DAYS
     Route: 042
  9. MESNA [Concomitant]
     Active Substance: MESNA
     Indication: Salvage therapy
     Dosage: 300 MICROGRAM/SQ. METER, 1 EVERY 24
     Route: 042
  10. MESNA [Concomitant]
     Active Substance: MESNA
     Dosage: 330 MICROGRAM/SQ. METER
     Route: 042
  11. MESNA [Concomitant]
     Active Substance: MESNA
     Dosage: 480 MICROGRAM/SQ. METER, 3 EVERY 1 DAYS
     Route: 042

REACTIONS (2)
  - Neutropenia [Unknown]
  - Thrombocytopenia [Unknown]
